FAERS Safety Report 7139595-6 (Version None)
Quarter: 2010Q4

REPORT INFORMATION
  Report Type: 
  Country: None (occurrence: None)
  Receive Date: 20101206
  Receipt Date: 20101130
  Transmission Date: 20110411
  Serious: Yes (Death)
  Sender: FDA-Public Use
  Company Number: PHHY2010DE76954

PATIENT
  Sex: Male

DRUGS (2)
  1. GLIVEC [Suspect]
     Indication: ACUTE LYMPHOCYTIC LEUKAEMIA
     Dosage: UNK
     Route: 048
  2. GLIVEC [Suspect]
     Indication: CHROMOSOME ANALYSIS ABNORMAL

REACTIONS (8)
  - BRAIN DEATH [None]
  - CEREBRAL HAEMORRHAGE [None]
  - CONFUSIONAL STATE [None]
  - CRANIOTOMY [None]
  - LOSS OF CONSCIOUSNESS [None]
  - MYDRIASIS [None]
  - NERVOUS SYSTEM DISORDER [None]
  - UNRESPONSIVE TO STIMULI [None]
